FAERS Safety Report 10700991 (Version 1)
Quarter: 2014Q4

REPORT INFORMATION
  Report Type: Spontaneous
  Country: US (occurrence: None)
  Receive Date: 20141224
  Receipt Date: 20141224
  Transmission Date: 20150529
  Serious: Yes (Other)
  Sender: FDA-Public Use
  Company Number: PHEH2014US021353

PATIENT
  Age: 20 Year
  Sex: Male
  Weight: 60.1 kg

DRUGS (7)
  1. EXJADE [Suspect]
     Active Substance: DEFERASIROX
     Indication: MYELODYSPLASTIC SYNDROME
     Route: 048
     Dates: start: 20140918, end: 20141006
  2. EXJADE [Suspect]
     Active Substance: DEFERASIROX
     Indication: IRON OVERLOAD
     Route: 048
     Dates: start: 20140918, end: 20141006
  3. LEVAQUIN [Concomitant]
     Active Substance: LEVOFLOXACIN
  4. VORICONAZOLE. [Concomitant]
     Active Substance: VORICONAZOLE
  5. 5-AZACYTIDINE (AZACITIDINE) [Concomitant]
  6. DESFERAL (DEFEROXAMINE MESILATE) [Concomitant]
  7. SYNTHROID [Concomitant]
     Active Substance: LEVOTHYROXINE SODIUM

REACTIONS (3)
  - Blood creatinine increased [None]
  - Dehydration [None]
  - Nausea [None]

NARRATIVE: CASE EVENT DATE: 20141006
